FAERS Safety Report 15557959 (Version 1)
Quarter: 2018Q4

REPORT INFORMATION
  Report Type: Spontaneous
  Country: US (occurrence: US)
  Receive Date: 20181027
  Receipt Date: 20181027
  Transmission Date: 20190205
  Serious: No
  Sender: FDA-Public Use
  Company Number: US-IPSEN BIOPHARMACEUTICALS, INC.-2018-13526

PATIENT
  Age: 64 Year
  Sex: Female
  Weight: 73.55 kg

DRUGS (6)
  1. SINGULAIR [Concomitant]
     Active Substance: MONTELUKAST SODIUM
     Indication: ASTHMA
  2. L-TYROSINE [Concomitant]
     Active Substance: TYROSINE
  3. CARDIZEM ER [Concomitant]
     Active Substance: DILTIAZEM HYDROCHLORIDE
     Dosage: AT NIGHT
  4. ADVAIR DISKUS [Concomitant]
     Active Substance: FLUTICASONE PROPIONATE\SALMETEROL XINAFOATE
  5. SUPREP BOWEL PREP [Suspect]
     Active Substance: MAGNESIUM SULFATE\POTASSIUM SULFATE\SODIUM SULFATE
     Indication: BOWEL PREPARATION
     Dosage: 1X 6 OZ BOTTLE 1X PO
     Route: 048
     Dates: start: 20180816, end: 20180816
  6. PREMARIN [Concomitant]
     Active Substance: ESTROGENS, CONJUGATED

REACTIONS (11)
  - Dizziness [Recovered/Resolved]
  - Vomiting [Recovered/Resolved]
  - Dyspepsia [Recovered/Resolved]
  - Retching [Recovered/Resolved]
  - Blood potassium decreased [Unknown]
  - Weight decreased [Unknown]
  - Dyspepsia [Unknown]
  - Protein total decreased [Unknown]
  - Nausea [Recovered/Resolved]
  - Asthenia [Not Recovered/Not Resolved]
  - Abdominal pain [Recovered/Resolved]

NARRATIVE: CASE EVENT DATE: 201808
